FAERS Safety Report 5702442-0 (Version None)
Quarter: 2008Q2

REPORT INFORMATION
  Report Type: 
  Country: None (occurrence: None)
  Receive Date: 20080411
  Receipt Date: 20071029
  Transmission Date: 20081010
  Serious: No
  Sender: FDA-Public Use
  Company Number: US-ASTRAZENECA-2007UW25192

PATIENT

DRUGS (1)
  1. LISINOPRIL + HYDROCLOROTHIAZIDE [Suspect]
     Indication: HYPERTENSION
     Dosage: 20/25 MG
     Route: 048
     Dates: start: 19970101

REACTIONS (1)
  - BLOOD PRESSURE INCREASED [None]
